FAERS Safety Report 21629918 (Version 1)
Quarter: 2022Q4

REPORT INFORMATION
  Report Type: Spontaneous
  Country: IT (occurrence: IT)
  Receive Date: 20221122
  Receipt Date: 20221122
  Transmission Date: 20230112
  Serious: Yes (Other)
  Sender: FDA-Public Use
  Company Number: None

PATIENT
  Age: 58 Year
  Sex: Female
  Weight: 78 kg

DRUGS (5)
  1. PACLITAXEL [Suspect]
     Active Substance: PACLITAXEL
     Indication: Breast cancer
     Dosage: TAKEN ONCE A WEEK FOR 12 ADMINISTRATION
     Route: 042
     Dates: start: 202205
  2. FAMOTIDINA [Concomitant]
     Indication: Ulcer
     Dosage: 20MG
     Route: 048
     Dates: start: 202205, end: 20221012
  3. ONDANSETRON [Concomitant]
     Active Substance: ONDANSETRON
     Indication: Nausea
     Dosage: 8MG
     Route: 042
     Dates: start: 202205
  4. DEXAMETHASONE [Concomitant]
     Active Substance: DEXAMETHASONE
     Indication: Hypercalcaemia of malignancy
     Dosage: 8MG
     Route: 042
     Dates: start: 202205
  5. TRIMETON [Concomitant]
     Active Substance: CHLORPHENIRAMINE MALEATE
     Indication: Vomiting
     Dosage: 10MG
     Route: 042
     Dates: start: 202205, end: 20221012

REACTIONS (6)
  - Leukopenia [Recovering/Resolving]
  - Onychoclasis [Recovering/Resolving]
  - Nasal dryness [Recovering/Resolving]
  - Paraesthesia [Recovering/Resolving]
  - Asthenia [Recovering/Resolving]
  - Nausea [Recovering/Resolving]

NARRATIVE: CASE EVENT DATE: 20220501
